FAERS Safety Report 4384845-2 (Version None)
Quarter: 2004Q2

REPORT INFORMATION
  Report Type: 
  Country: None (occurrence: None)
  Receive Date: 20040623
  Receipt Date: 20040623
  Transmission Date: 20050107
  Serious: Yes (Hospitalization)
  Sender: FDA-Public Use
  Company Number: None

PATIENT
  Age: 64 Year
  Sex: Female
  Weight: 71.2 kg

DRUGS (4)
  1. GEMZAR [Suspect]
     Indication: METASTASES TO LIVER
     Dosage: 2110 MG IVPB WEEK
     Route: 042
     Dates: start: 20040324, end: 20040609
  2. GEMZAR [Suspect]
     Indication: PANCREATIC CARCINOMA
     Dosage: 2110 MG IVPB WEEK
     Route: 042
     Dates: start: 20040324, end: 20040609
  3. IRESSA [Suspect]
     Indication: METASTASES TO LIVER
     Dosage: 250 MG QD PO
     Route: 048
     Dates: start: 20040324
  4. IRESSA [Suspect]
     Indication: PANCREATIC CARCINOMA
     Dosage: 250 MG QD PO
     Route: 048
     Dates: start: 20040324

REACTIONS (1)
  - PYREXIA [None]
